FAERS Safety Report 5502920-3 (Version None)
Quarter: 2007Q4

REPORT INFORMATION
  Report Type: 
  Country: None (occurrence: None)
  Receive Date: 20071031
  Receipt Date: 20071031
  Transmission Date: 20080405
  Serious: Yes (Hospitalization)
  Sender: FDA-Public Use
  Company Number: A0690110A

PATIENT
  Age: 75 Year
  Sex: Male
  Weight: 51 kg

DRUGS (3)
  1. SERETIDE [Suspect]
     Indication: CHRONIC OBSTRUCTIVE PULMONARY DISEASE
     Route: 055
     Dates: start: 20060601
  2. SPIRIVA [Concomitant]
     Dates: start: 20060801
  3. FLUIMUCIL [Concomitant]
     Dates: start: 20050801

REACTIONS (4)
  - DYSPNOEA [None]
  - FALL [None]
  - PNEUMONIA [None]
  - UPPER LIMB FRACTURE [None]
